FAERS Safety Report 16372273 (Version 1)
Quarter: 2019Q2

REPORT INFORMATION
  Report Type: Spontaneous
  Country: NL (occurrence: PL)
  Receive Date: 20190530
  Receipt Date: 20190530
  Transmission Date: 20190711
  Serious: Yes (Life-Threatening)
  Sender: FDA-Public Use
  Company Number: PL-FRESENIUS KABI-FK201906003

PATIENT
  Age: 39 Year
  Sex: Male
  Weight: 77 kg

DRUGS (1)
  1. OXALIPLATIN (MANUFACTURER UNKNOWN) [Suspect]
     Active Substance: OXALIPLATIN
     Indication: COLON CANCER
     Route: 042
     Dates: start: 20160801, end: 20160831

REACTIONS (7)
  - Blood pressure decreased [Unknown]
  - Hyperhidrosis [Unknown]
  - Face oedema [Unknown]
  - Conjunctival hyperaemia [Unknown]
  - Heart rate increased [Unknown]
  - Lip oedema [Unknown]
  - Asthenia [Unknown]

NARRATIVE: CASE EVENT DATE: 20160831
